FAERS Safety Report 11527389 (Version 1)
Quarter: 2015Q3

REPORT INFORMATION
  Report Type: Spontaneous
  Country: US (occurrence: US)
  Receive Date: 20150903
  Receipt Date: 20150903
  Transmission Date: 20151125
  Serious: No
  Sender: FDA-Public Use
  Company Number: US-ELI_LILLY_AND_COMPANY-US200812005652

PATIENT
  Age: 35 Year
  Sex: Female

DRUGS (2)
  1. PRENATAL VITAMINS /01549301/ [Concomitant]
     Active Substance: VITAMINS
     Dosage: UNK, DAILY (1/D)
  2. HUMALOG [Suspect]
     Active Substance: INSULIN LISPRO
     Indication: GESTATIONAL DIABETES
     Dosage: UNK, AS NEEDED
     Dates: start: 20081120

REACTIONS (2)
  - Exposure during pregnancy [Unknown]
  - Pregnancy with advanced maternal age [Unknown]

NARRATIVE: CASE EVENT DATE: 20081120
